FAERS Safety Report 9462976 (Version 2)
Quarter: 2013Q4

REPORT INFORMATION
  Report Type: Spontaneous
  Country: FR (occurrence: FR)
  Receive Date: 20130816
  Receipt Date: 20131105
  Transmission Date: 20140711
  Serious: Yes (Hospitalization)
  Sender: FDA-Public Use
  Company Number: FR-ASTRAZENECA-2013SE63263

PATIENT
  Age: 10743 Day
  Sex: Male

DRUGS (10)
  1. XEROQUEL [Suspect]
     Route: 048
     Dates: start: 20130405, end: 20130503
  2. LYRICA [Suspect]
     Route: 048
     Dates: start: 201302, end: 20130530
  3. LYRICA [Suspect]
     Dosage: DOSE PROGRESSIVELY DECREASED
     Route: 048
     Dates: start: 20130530, end: 20130617
  4. DEPAKOTE [Concomitant]
  5. TERCIAN [Concomitant]
  6. CONTRAMAL [Concomitant]
  7. XATRAL [Concomitant]
  8. UROREC [Concomitant]
  9. SPIRONOLACTONE [Concomitant]
  10. METHADONE [Concomitant]
     Indication: DRUG DEPENDENCE

REACTIONS (3)
  - Generalised oedema [Recovered/Resolved]
  - Ascites [Recovered/Resolved]
  - Weight increased [Recovered/Resolved]
